FAERS Safety Report 9122514 (Version 1)
Quarter: 2013Q1

REPORT INFORMATION
  Report Type: Spontaneous
  Country: BR (occurrence: BR)
  Receive Date: 20130227
  Receipt Date: 20130227
  Transmission Date: 20140127
  Serious: Yes (Other)
  Sender: FDA-Public Use
  Company Number: PHHY2013BR018283

PATIENT
  Sex: Female

DRUGS (3)
  1. GALVUS MET [Suspect]
     Indication: DIABETES MELLITUS
     Dosage: 1 DF, (850/50 MG) DAILY
     Dates: start: 201207
  2. RASILEZ [Suspect]
     Dosage: 1 DF, (150 MG) DAILY
     Dates: start: 201207
  3. GLIFAGE [Suspect]
     Indication: DIABETES MELLITUS
     Dosage: 1 DF, DAILY

REACTIONS (2)
  - Intervertebral disc protrusion [Unknown]
  - Pain [Unknown]
